FAERS Safety Report 4390914-3 (Version None)
Quarter: 2004Q3

REPORT INFORMATION
  Report Type: 
  Country: None (occurrence: None)
  Receive Date: 20040702
  Receipt Date: 20040702
  Transmission Date: 20050211
  Serious: No
  Sender: FDA-Public Use
  Company Number: None

PATIENT

DRUGS (1)
  1. MEPERIDINE HCL [Suspect]
     Dosage: 100 MG Q 3 HOURS X 4-5 DAYS

REACTIONS (4)
  - CONVULSION [None]
  - MEDICATION ERROR [None]
  - MYOCLONUS [None]
  - SEROTONIN SYNDROME [None]
